FAERS Safety Report 7359533-0 (Version None)
Quarter: 2011Q1

REPORT INFORMATION
  Report Type: 
  Country: None (occurrence: None)
  Receive Date: 20110317
  Receipt Date: 20110217
  Transmission Date: 20110831
  Serious: No
  Sender: FDA-Public Use
  Company Number: US-BAYER-2011-016401

PATIENT
  Sex: Female
  Weight: 86 kg

DRUGS (1)
  1. ALEVE (CAPLET) [Suspect]
     Indication: ARTHRITIS
     Dosage: BOTTLE COUNT 24S
     Route: 048
     Dates: start: 20101201, end: 20110216

REACTIONS (1)
  - NO ADVERSE EVENT [None]
